FAERS Safety Report 7830778-6 (Version None)
Quarter: 2011Q4

REPORT INFORMATION
  Report Type: 
  Country: None (occurrence: None)
  Receive Date: 20111021
  Receipt Date: 20111018
  Transmission Date: 20120403
  Serious: Yes (Other)
  Sender: FDA-Public Use
  Company Number: US-GLAXOSMITHKLINE-A0920096A

PATIENT
  Sex: Female

DRUGS (2)
  1. PAXIL CR [Suspect]
     Indication: PRODUCT USED FOR UNKNOWN INDICATION
     Route: 064
  2. PAXIL [Suspect]
     Indication: PRODUCT USED FOR UNKNOWN INDICATION
     Route: 064

REACTIONS (17)
  - DANDY-WALKER SYNDROME [None]
  - NEONATAL RESPIRATORY DISTRESS SYNDROME [None]
  - LUNG DISORDER [None]
  - MATERNAL EXPOSURE DURING PREGNANCY [None]
  - INFANTILE APNOEIC ATTACK [None]
  - CONGENITAL RENAL CYST [None]
  - ANAEMIA [None]
  - PATENT DUCTUS ARTERIOSUS [None]
  - SEPSIS [None]
  - HAEMANGIOMA [None]
  - ATRIAL SEPTAL DEFECT [None]
  - PREMATURE BABY [None]
  - RESPIRATORY DISTRESS [None]
  - PULMONARY HAEMORRHAGE [None]
  - MATERNAL DRUGS AFFECTING FOETUS [None]
  - HYDRONEPHROSIS [None]
  - GASTROOESOPHAGEAL REFLUX DISEASE [None]
